FAERS Safety Report 9027959 (Version 1)
Quarter: 2012Q4

REPORT INFORMATION
  Report Type: Spontaneous
  Country: US (occurrence: None)
  Receive Date: 20120831
  Receipt Date: 20120831
  Transmission Date: 20130627
  Serious: Yes (Other)
  Sender: FDA-Public Use
  Company Number: USA/USA/12/0025456

PATIENT
  Age: 48 Year
  Sex: Female

DRUGS (1)
  1. CIPROFLOXACIN [Suspect]
     Indication: SINUS DISORDER
     Route: 048
     Dates: start: 20120802, end: 20120806

REACTIONS (12)
  - Palpitations [None]
  - Palpitations [None]
  - Anxiety [None]
  - Arthralgia [None]
  - Muscle tightness [None]
  - Dizziness [None]
  - Dizziness [None]
  - Pain [None]
  - Pain [None]
  - Anger [None]
  - Suicidal ideation [None]
  - Emotional disorder [None]
